FAERS Safety Report 8815522 (Version 1)
Quarter: 2012Q4

REPORT INFORMATION
  Report Type: 
  Country: CO (occurrence: CO)
  Receive Date: 20120928
  Receipt Date: 20120928
  Transmission Date: 20130627
  Serious: Yes (Other)
  Sender: FDA-Public Use
  Company Number: CO-JNJFOC-20120801438

PATIENT

DRUGS (2)
  1. REMICADE [Suspect]
     Indication: RHEUMATOID ARTHRITIS
     Dosage: 0,2,6,14 and 22 (32) weeks
     Route: 042
  2. ALL OTHER THERAPEUTICS [Concomitant]
     Indication: RHEUMATOID ARTHRITIS
     Route: 065

REACTIONS (1)
  - Tuberculosis [Recovered/Resolved]
